FAERS Safety Report 5935497-9 (Version None)
Quarter: 2008Q4

REPORT INFORMATION
  Report Type: 
  Country: None (occurrence: None)
  Receive Date: 20081028
  Receipt Date: 20081021
  Transmission Date: 20090506
  Serious: Yes (Other)
  Sender: FDA-Public Use
  Company Number: 2008SP019394

PATIENT
  Sex: Female

DRUGS (4)
  1. MIRALAX [Suspect]
     Indication: IRRITABLE BOWEL SYNDROME
     Dosage: QD PO
     Route: 048
     Dates: start: 20080818, end: 20080902
  2. MIRALAX [Suspect]
     Indication: OFF LABEL USE
     Dosage: QD PO
     Route: 048
     Dates: start: 20080818, end: 20080902
  3. ADVAIR DISKUS 100/50 [Concomitant]
  4. SINGULAIR [Concomitant]

REACTIONS (6)
  - ANAEMIA [None]
  - APPLICATION SITE IRRITATION [None]
  - DIARRHOEA [None]
  - DRUG INEFFECTIVE [None]
  - HAEMORRHOIDS [None]
  - IMPAIRED WORK ABILITY [None]
